FAERS Safety Report 12300817 (Version 1)
Quarter: 2016Q2

REPORT INFORMATION
  Report Type: Report from Study
  Country: DE (occurrence: DE)
  Receive Date: 20160425
  Receipt Date: 20160425
  Transmission Date: 20160815
  Serious: Yes (Hospitalization)
  Sender: FDA-Public Use
  Company Number: DE-CELGENEUS-062-POMAL-14081836

PATIENT
  Age: 65 Year
  Sex: Female
  Weight: 90 kg

DRUGS (2)
  1. IMNOVID [Suspect]
     Active Substance: POMALIDOMIDE
     Indication: PLASMA CELL MYELOMA
     Route: 048
     Dates: start: 20140801, end: 20140807
  2. DEXAMETHASONE. [Suspect]
     Active Substance: DEXAMETHASONE
     Indication: PLASMA CELL MYELOMA
     Route: 065
     Dates: start: 20140801, end: 20140823

REACTIONS (5)
  - Confusional state [Not Recovered/Not Resolved]
  - Overdose [Recovered/Resolved]
  - Vitreous haemorrhage [Recovered/Resolved]
  - Fall [Recovered/Resolved]
  - General physical health deterioration [Recovered/Resolved]

NARRATIVE: CASE EVENT DATE: 20140804
